FAERS Safety Report 4716697-2 (Version None)
Quarter: 2005Q3

REPORT INFORMATION
  Report Type: 
  Country: None (occurrence: None)
  Receive Date: 20050714
  Receipt Date: 20050705
  Transmission Date: 20060218
  Serious: Yes (Other)
  Sender: FDA-Public Use
  Company Number: 2004-08-0249

PATIENT
  Age: 63 Year
  Sex: Male

DRUGS (4)
  1. PEG-INTRON [Suspect]
     Indication: HEPATITIS C
     Dosage: 80 MCG QWK SUBCUTANEOUS
     Route: 058
     Dates: start: 20040206, end: 20041201
  2. REBETOL [Suspect]
     Indication: HEPATITIS C
     Dosage: 1000 MG QD ORAL
     Route: 048
     Dates: start: 20040206, end: 20041201
  3. PAXIL [Concomitant]
  4. ZESTRIL [Concomitant]

REACTIONS (3)
  - BLOOD PRESSURE INCREASED [None]
  - LARYNGEAL CANCER [None]
  - PSYCHOTIC DISORDER [None]
